FAERS Safety Report 10422153 (Version 1)
Quarter: 2014Q3

REPORT INFORMATION
  Report Type: Spontaneous
  Country: BR (occurrence: BR)
  Receive Date: 20140901
  Receipt Date: 20140901
  Transmission Date: 20150326
  Serious: Yes (Other)
  Sender: FDA-Public Use
  Company Number: BR-JNJFOC-20140823443

PATIENT
  Sex: Female

DRUGS (7)
  1. LORAX [Concomitant]
     Active Substance: LORAZEPAM
     Indication: PRODUCT USED FOR UNKNOWN INDICATION
     Route: 065
     Dates: start: 2012
  2. VITAMIN D [Concomitant]
     Active Substance: CHOLECALCIFEROL
     Indication: PRODUCT USED FOR UNKNOWN INDICATION
     Route: 065
     Dates: start: 201408
  3. TRAMAL RETARD [Suspect]
     Active Substance: TRAMADOL
     Indication: SPINAL PAIN
     Dosage: 8 DF
     Route: 048
     Dates: start: 2012
  4. TRAMAL RETARD [Suspect]
     Active Substance: TRAMADOL
     Indication: PAIN IN EXTREMITY
     Route: 048
  5. TRAMAL RETARD [Suspect]
     Active Substance: TRAMADOL
     Indication: PAIN IN EXTREMITY
     Dosage: 8 DF
     Route: 048
     Dates: start: 2012
  6. TRAMAL RETARD [Suspect]
     Active Substance: TRAMADOL
     Indication: SPINAL PAIN
     Route: 048
  7. LOSARTAN [Concomitant]
     Active Substance: LOSARTAN
     Indication: HYPERTENSION
     Route: 065
     Dates: start: 201407

REACTIONS (2)
  - Overdose [Unknown]
  - Vertebral lesion [Unknown]
